FAERS Safety Report 4392957-2 (Version None)
Quarter: 2004Q3

REPORT INFORMATION
  Report Type: 
  Country: None (occurrence: None)
  Receive Date: 20040702
  Receipt Date: 20040621
  Transmission Date: 20050211
  Serious: No
  Sender: FDA-Public Use
  Company Number: 2004PK01106

PATIENT
  Age: 29 Year
  Sex: Male
  Weight: 111 kg

DRUGS (5)
  1. SEROQUEL [Suspect]
     Indication: BIPOLAR DISORDER
     Dosage: 500 MG DAILY PO
     Route: 048
     Dates: start: 20040605, end: 20040607
  2. MARCUMAR [Suspect]
     Indication: OBESITY
     Dates: end: 20040603
  3. MARCUMAR [Suspect]
     Indication: THROMBOSIS PROPHYLAXIS
     Dates: end: 20040603
  4. ERGENYL CHRONO [Concomitant]
  5. LORAZEPAM [Concomitant]

REACTIONS (3)
  - COAGULOPATHY [None]
  - DRUG EFFECT INCREASED [None]
  - DRUG INTERACTION [None]
